FAERS Safety Report 4887813-7 (Version None)
Quarter: 2006Q1

REPORT INFORMATION
  Report Type: 
  Country: None (occurrence: None)
  Receive Date: 20060123
  Receipt Date: 20050218
  Transmission Date: 20060701
  Serious: Yes (Other)
  Sender: FDA-Public Use
  Company Number: US-MERCK-0502USA02846

PATIENT
  Age: 66 Year
  Sex: Female
  Weight: 83 kg

DRUGS (8)
  1. VIOXX [Suspect]
     Indication: KNEE OPERATION
     Route: 048
     Dates: start: 19990701, end: 20041001
  2. ATENOLOL [Concomitant]
     Route: 065
  3. ALLEGRA [Concomitant]
     Route: 065
  4. LIPITOR [Concomitant]
     Route: 065
  5. EFFEXOR [Concomitant]
     Route: 065
  6. ATIVAN [Concomitant]
     Route: 065
  7. METFORMIN [Concomitant]
     Route: 065
  8. CLARITIN [Concomitant]
     Route: 065

REACTIONS (4)
  - CEREBROVASCULAR ACCIDENT [None]
  - GLUCOSE TOLERANCE IMPAIRED [None]
  - THYROID NEOPLASM [None]
  - TRANSIENT ISCHAEMIC ATTACK [None]
